FAERS Safety Report 5705775-7 (Version None)
Quarter: 2008Q2

REPORT INFORMATION
  Report Type: 
  Country: None (occurrence: None)
  Receive Date: 20080415
  Receipt Date: 20080404
  Transmission Date: 20081010
  Serious: Yes (Hospitalization, Other)
  Sender: FDA-Public Use
  Company Number: GB-JNJFOC-20080401931

PATIENT
  Sex: Female
  Weight: 65 kg

DRUGS (10)
  1. REMICADE [Suspect]
     Indication: RHEUMATOID ARTHRITIS
     Route: 042
  2. METHOTREXATE [Concomitant]
  3. ADCAL [Concomitant]
  4. BECLOMETHASONE DIPROPIONATE [Concomitant]
  5. ETORICOXIB [Concomitant]
  6. FERROUS SULFATE TAB [Concomitant]
  7. FOLIC ACID [Concomitant]
  8. HYDROXYCHLOROQUINE [Concomitant]
  9. RISEDRONATE SODIUM [Concomitant]
  10. SALMETEROL [Concomitant]

REACTIONS (4)
  - DIPLOPIA [None]
  - DIZZINESS [None]
  - EAR PAIN [None]
  - VITH NERVE PARALYSIS [None]
